FAERS Safety Report 7822747-7 (Version None)
Quarter: 2011Q4

REPORT INFORMATION
  Report Type: 
  Country: None (occurrence: None)
  Receive Date: 20111018
  Receipt Date: 20110923
  Transmission Date: 20120403
  Serious: Yes (Death)
  Sender: FDA-Public Use
  Company Number: GB-ROCHE-GNE324473

PATIENT
  Sex: Male

DRUGS (8)
  1. LUCENTIS [Suspect]
     Indication: AGE-RELATED MACULAR DEGENERATION
     Dosage: REGIMEN  2.
     Route: 050
     Dates: start: 20100608
  2. LUCENTIS [Suspect]
     Dosage: REGIMEN 3
     Route: 050
     Dates: start: 20100826
  3. LUCENTIS [Suspect]
     Dosage: REGIMEN 1
     Route: 050
     Dates: start: 20100608
  4. LANSOPRAZOLE [Concomitant]
     Dates: start: 20060829
  5. WARFARIN SODIUM [Concomitant]
     Dates: start: 20070405
  6. OXYCODONE HCL [Concomitant]
  7. FUROSEMIDE [Concomitant]
     Dates: start: 20071002
  8. RAMIPRIL [Concomitant]
     Dates: start: 20070829

REACTIONS (1)
  - MULTIPLE MYELOMA [None]
